FAERS Safety Report 8904099 (Version 1)
Quarter: 2012Q4

REPORT INFORMATION
  Report Type: 
  Country: US (occurrence: US)
  Receive Date: 20121112
  Receipt Date: 20121112
  Transmission Date: 20130627
  Serious: No
  Sender: FDA-Public Use
  Company Number: US-COVIDIEN/TYCO HEALTHCARE/MALLINCKRODT-T201203604

PATIENT
  Age: 83 Year
  Sex: Female

DRUGS (5)
  1. FENTANYL TRANSDERMAL SYSTEM [Suspect]
     Indication: PRODUCT USED FOR UNKNOWN INDICATION
     Dosage: UNKNOWN, Q 48 hours
  2. FUROSEMIDE [Concomitant]
     Dosage: UNK
  3. LISINOPRIL [Concomitant]
     Dosage: UNK
  4. COUMADIN                           /00014802/ [Concomitant]
     Dosage: UNK
  5. METOLAZONE [Concomitant]
     Dosage: UNK

REACTIONS (3)
  - Tremor [Unknown]
  - Feeling of body temperature change [Unknown]
  - Inappropriate schedule of drug administration [Unknown]
